FAERS Safety Report 11473760 (Version 1)
Quarter: 2015Q3

REPORT INFORMATION
  Report Type: Spontaneous
  Country: US (occurrence: None)
  Receive Date: 20150908
  Receipt Date: 20150908
  Transmission Date: 20151125
  Serious: No
  Sender: FDA-Public Use
  Company Number: None

PATIENT
  Age: 34 Year
  Sex: Male
  Weight: 74.84 kg

DRUGS (12)
  1. FENTANYL. [Concomitant]
     Active Substance: FENTANYL
  2. CYMBALTA [Concomitant]
     Active Substance: DULOXETINE HYDROCHLORIDE
  3. NUCYNTA [Concomitant]
     Active Substance: TAPENTADOL HYDROCHLORIDE
  4. ZOCOR [Concomitant]
     Active Substance: SIMVASTATIN
  5. REGLAN [Concomitant]
     Active Substance: METOCLOPRAMIDE HYDROCHLORIDE
  6. VITAMIN D [Concomitant]
     Active Substance: CHOLECALCIFEROL
  7. MACA ROOT [Concomitant]
  8. CELEBREX [Concomitant]
     Active Substance: CELECOXIB
  9. REMICADE [Suspect]
     Active Substance: INFLIXIMAB
     Indication: ANKYLOSING SPONDYLITIS
     Dosage: ONCE EVERY 6 WEEKS, INTO A VEIN
  10. GRALISE [Concomitant]
     Active Substance: GABAPENTIN
  11. BACLOFEN. [Concomitant]
     Active Substance: BACLOFEN
  12. NEXIUM [Concomitant]
     Active Substance: ESOMEPRAZOLE MAGNESIUM

REACTIONS (2)
  - Psoriasis [None]
  - Hyperhidrosis [None]
